FAERS Safety Report 7748287-1 (Version None)
Quarter: 2011Q3

REPORT INFORMATION
  Report Type: 
  Country: None (occurrence: None)
  Receive Date: 20110913
  Receipt Date: 20110829
  Transmission Date: 20111222
  Serious: Yes (Other)
  Sender: FDA-Public Use
  Company Number: CA-GENENTECH-323936

PATIENT
  Sex: Male

DRUGS (13)
  1. NASONEX [Concomitant]
     Indication: PRODUCT USED FOR UNKNOWN INDICATION
  2. QVAR 40 [Concomitant]
     Indication: PRODUCT USED FOR UNKNOWN INDICATION
  3. VENTOLIN HFA [Concomitant]
     Indication: PRODUCT USED FOR UNKNOWN INDICATION
  4. ALUMINIUM HYDROXIDE GEL, DRIED [Concomitant]
     Indication: PRODUCT USED FOR UNKNOWN INDICATION
  5. SYMBICORT [Concomitant]
     Indication: PRODUCT USED FOR UNKNOWN INDICATION
  6. PREDNISONE [Concomitant]
     Indication: PRODUCT USED FOR UNKNOWN INDICATION
  7. ACETYLSALICYLIC ACID SRT [Concomitant]
     Indication: PRODUCT USED FOR UNKNOWN INDICATION
  8. MEPYRAMINE MALEATE [Concomitant]
     Indication: PRODUCT USED FOR UNKNOWN INDICATION
  9. CAFFEINE [Concomitant]
     Indication: PRODUCT USED FOR UNKNOWN INDICATION
  10. ACETAMINOPHEN [Concomitant]
     Indication: PRODUCT USED FOR UNKNOWN INDICATION
  11. MEDICATION (UNK INGREDIENT) [Suspect]
     Indication: PRODUCT USED FOR UNKNOWN INDICATION
  12. XOLAIR [Suspect]
     Indication: ASTHMA
     Dosage: 300 MG, Q4W
     Route: 058
     Dates: start: 20100831
  13. PHENYLPROPANOLAMINE HYDROCHLORIDE [Concomitant]
     Indication: PRODUCT USED FOR UNKNOWN INDICATION

REACTIONS (1)
  - AXILLARY MASS [None]
